FAERS Safety Report 5402657-5 (Version None)
Quarter: 2007Q3

REPORT INFORMATION
  Report Type: 
  Country: None (occurrence: None)
  Receive Date: 20070730
  Receipt Date: 20070723
  Transmission Date: 20080115
  Serious: Yes (Other)
  Sender: FDA-Public Use
  Company Number: 07H-163-0312920-00

PATIENT
  Age: 6 Year
  Sex: Male
  Weight: 25 kg

DRUGS (11)
  1. FENTANYL CITRATE [Suspect]
     Indication: ANALGESIC THERAPY
     Dosage: 50 MCG, INTRAVENOUS, 50  MCG, INTRAVENOUS, 1 MCG/KG/HR - 20 MCG/KG/HR INFUSION
     Route: 042
  2. MIDAZOLAM HYDROCHLORIDE [Suspect]
     Indication: ANALGESIC THERAPY
     Dosage: 3 MG, INTRAVENOUS, 1 MG, INTRAVENOUS, 0.0 MG/KG/HR - 0.8 MG/KG/HR, INFUSION
     Route: 042
  3. ETOMIDATE [Concomitant]
  4. VECURONIUM (VECURONIUM ) [Concomitant]
  5. COCAINE 4 (COCAINE) [Concomitant]
  6. MORPHINE SULFATE [Concomitant]
  7. PROPOFOL [Concomitant]
  8. NITROUS OXIDE (NITROUS OXIDE) [Concomitant]
  9. SEVOFLURANE [Concomitant]
  10. DESFLURANE (DESFLURANE) [Concomitant]
  11. ATRACURIUM BESYLATE [Concomitant]

REACTIONS (8)
  - AGITATION [None]
  - CHOREOATHETOSIS [None]
  - CLONUS [None]
  - DRUG TOLERANCE [None]
  - DRUG WITHDRAWAL SYNDROME [None]
  - HUNGER [None]
  - RESTLESSNESS [None]
  - TREMOR [None]
